FAERS Safety Report 14444978 (Version 2)
Quarter: 2018Q3

REPORT INFORMATION
  Report Type: Spontaneous
  Country: US (occurrence: US)
  Receive Date: 20180126
  Receipt Date: 20180830
  Transmission Date: 20181010
  Serious: No
  Sender: FDA-Public Use
  Company Number: US-PFIZER INC-2018031453

PATIENT
  Age: 61 Year
  Sex: Female

DRUGS (2)
  1. EFFEXOR XR [Suspect]
     Active Substance: VENLAFAXINE HYDROCHLORIDE
     Indication: DEPRESSION
     Dosage: UNK
  2. ABILIFY [Concomitant]
     Active Substance: ARIPIPRAZOLE
     Indication: DEPRESSION
     Dosage: UNK, 2X/DAY

REACTIONS (5)
  - Balance disorder [Unknown]
  - Feeling abnormal [Unknown]
  - Drug dose omission [Unknown]
  - Nausea [Unknown]
  - Drug ineffective [Recovering/Resolving]
